FAERS Safety Report 20846635 (Version 1)
Quarter: 2022Q2

REPORT INFORMATION
  Report Type: Spontaneous
  Country: TW (occurrence: TW)
  Receive Date: 20220519
  Receipt Date: 20220519
  Transmission Date: 20220721
  Serious: Yes (Death, Other)
  Sender: FDA-Public Use
  Company Number: None

PATIENT
  Sex: Male

DRUGS (11)
  1. PREDNISOLONE [Interacting]
     Active Substance: PREDNISOLONE
     Indication: Recall phenomenon
     Dosage: 20 MILLIGRAM, BID
     Route: 048
  2. ETOPOSIDE [Suspect]
     Active Substance: ETOPOSIDE
     Indication: Oesophageal squamous cell carcinoma
     Dosage: UNK, FOUR COURSES OF CHEMOTHERAPY
     Route: 065
     Dates: start: 2017
  3. PEMBROLIZUMAB [Interacting]
     Active Substance: PEMBROLIZUMAB
     Indication: Metastatic neoplasm
     Dosage: UNK, , AND A THIRD COURSE WAS COMPLETED IN LATE OCTOBER
     Route: 065
     Dates: start: 201709
  4. PEMBROLIZUMAB [Interacting]
     Active Substance: PEMBROLIZUMAB
     Indication: Disease progression
     Dosage: UNK
     Route: 065
  5. PEMBROLIZUMAB [Interacting]
     Active Substance: PEMBROLIZUMAB
     Indication: Oesophageal squamous cell carcinoma
  6. METHOTREXATE [Concomitant]
     Active Substance: METHOTREXATE
     Indication: Disease progression
     Dosage: UNK, , AND A THIRD COURSE WAS COMPLETED IN LATE OCTOBER
     Route: 065
     Dates: start: 201709
  7. METHOTREXATE [Concomitant]
     Active Substance: METHOTREXATE
     Indication: Oesophageal squamous cell carcinoma
  8. METHOTREXATE [Concomitant]
     Active Substance: METHOTREXATE
     Indication: Metastatic neoplasm
  9. CISPLATIN [Concomitant]
     Active Substance: CISPLATIN
     Indication: Oesophageal squamous cell carcinoma
     Dosage: UNK
     Route: 065
     Dates: start: 201612, end: 201703
  10. CISPLATIN [Concomitant]
     Active Substance: CISPLATIN
     Dosage: UNK, FOUR COURSES OF CHEMOTHERAPY
     Route: 065
     Dates: start: 2017
  11. CETUXIMAB [Concomitant]
     Active Substance: CETUXIMAB
     Indication: Oesophageal squamous cell carcinoma
     Dosage: UNK, FOUR COURSES OF CHEMOTHERAPY
     Route: 065
     Dates: start: 2017

REACTIONS (4)
  - Metastases to skin [Fatal]
  - Condition aggravated [Fatal]
  - Drug interaction [Unknown]
  - Off label use [Unknown]
